FAERS Safety Report 6236136-2 (Version None)
Quarter: 2009Q2

REPORT INFORMATION
  Report Type: 
  Country: None (occurrence: None)
  Receive Date: 20090616
  Receipt Date: 20090610
  Transmission Date: 20091009
  Serious: Yes (Other)
  Sender: FDA-Public Use
  Company Number: CHPA2009US13326

PATIENT
  Sex: Female

DRUGS (1)
  1. NICOTINE [Suspect]
     Indication: SMOKING CESSATION THERAPY
     Dosage: 21 MG, QD, TRANSDERMAL
     Route: 062
     Dates: start: 20090609

REACTIONS (5)
  - HALLUCINATION [None]
  - MALAISE [None]
  - NAUSEA [None]
  - RETCHING [None]
  - WRONG TECHNIQUE IN DRUG USAGE PROCESS [None]
